FAERS Safety Report 6762842-7 (Version None)
Quarter: 2010Q2

REPORT INFORMATION
  Report Type: 
  Country: None (occurrence: None)
  Receive Date: 20100609
  Receipt Date: 20100528
  Transmission Date: 20101027
  Serious: Yes (Hospitalization)
  Sender: FDA-Public Use
  Company Number: NL-MEDIMMUNE-MEDI-0010924

PATIENT
  Sex: Female
  Weight: 9.8 kg

DRUGS (2)
  1. SYNAGIS [Suspect]
     Route: 030
     Dates: start: 20080101, end: 20100224
  2. SYNAGIS [Suspect]
     Route: 030

REACTIONS (2)
  - LOWER RESPIRATORY TRACT INFECTION VIRAL [None]
  - ROTAVIRUS INFECTION [None]
